FAERS Safety Report 7727302-5 (Version None)
Quarter: 2011Q3

REPORT INFORMATION
  Report Type: 
  Country: None (occurrence: None)
  Receive Date: 20110902
  Receipt Date: 20110829
  Transmission Date: 20111222
  Serious: Yes (Other)
  Sender: FDA-Public Use
  Company Number: JP-PFIZER INC-2011144642

PATIENT
  Age: 52 Year
  Sex: Female

DRUGS (4)
  1. MIZORIBINE [Suspect]
  2. AURANOFIN [Suspect]
  3. AZULFIDINE [Suspect]
     Dosage: UNK
  4. BUCILLAMINE [Concomitant]

REACTIONS (2)
  - RENAL IMPAIRMENT [None]
  - HEPATIC FUNCTION ABNORMAL [None]
